FAERS Safety Report 8393856-1 (Version None)
Quarter: 2012Q2

REPORT INFORMATION
  Report Type: 
  Country: None (occurrence: None)
  Receive Date: 20120530
  Receipt Date: 20120521
  Transmission Date: 20120825
  Serious: No
  Sender: FDA-Public Use
  Company Number: US-PFIZER INC-2012122422

PATIENT
  Sex: Female
  Weight: 68.027 kg

DRUGS (1)
  1. ADVIL PM [Suspect]
     Indication: INSOMNIA
     Dosage: UNK,DAILY AT NIGHT
     Route: 048
     Dates: start: 20120401, end: 20120101

REACTIONS (2)
  - INSOMNIA [None]
  - DRUG INEFFECTIVE [None]
